FAERS Safety Report 9508974 (Version 1)
Quarter: 2013Q3

REPORT INFORMATION
  Report Type: Spontaneous
  Country: US (occurrence: US)
  Receive Date: 20130909
  Receipt Date: 20130909
  Transmission Date: 20140515
  Serious: No
  Sender: FDA-Public Use
  Company Number: US-BRISTOL-MYERS SQUIBB COMPANY-19059435

PATIENT
  Age: 35 Year
  Sex: Male
  Weight: 82.8 kg

DRUGS (6)
  1. ABILIFY [Suspect]
     Indication: DELUSION
  2. ABILIFY [Suspect]
     Indication: SCHIZOAFFECTIVE DISORDER
  3. LITHIUM [Concomitant]
  4. PROPANOLOL HYDROCHLORIDE [Concomitant]
  5. TEMAZEPAM [Concomitant]
  6. PEPCID [Concomitant]

REACTIONS (1)
  - Adverse event [Unknown]
